FAERS Safety Report 17764842 (Version 4)
Quarter: 2020Q3

REPORT INFORMATION
  Report Type: Spontaneous
  Country: US (occurrence: US)
  Receive Date: 20200511
  Receipt Date: 20200910
  Transmission Date: 20201102
  Serious: No
  Sender: FDA-Public Use
  Company Number: US-GLAXOSMITHKLINE-US2020AMR076967

PATIENT
  Sex: Female

DRUGS (4)
  1. ZEJULA [Suspect]
     Active Substance: NIRAPARIB
     Dosage: 300 MG, QD
     Dates: start: 20200506
  2. ZEJULA [Suspect]
     Active Substance: NIRAPARIB
     Indication: OVARIAN CANCER
     Dosage: 300 MG, QD
     Dates: start: 20200501
  3. ZEJULA [Suspect]
     Active Substance: NIRAPARIB
     Dosage: 300 MG
  4. ZEJULA [Suspect]
     Active Substance: NIRAPARIB
     Dosage: 2 DF (PILLS), QD

REACTIONS (5)
  - Nausea [Unknown]
  - Dyspnoea exertional [Unknown]
  - Weight decreased [Unknown]
  - Insomnia [Unknown]
  - Hypertension [Unknown]
